FAERS Safety Report 4478627-0 (Version None)
Quarter: 2004Q4

REPORT INFORMATION
  Report Type: 
  Country: None (occurrence: None)
  Receive Date: 20041019
  Receipt Date: 20041013
  Transmission Date: 20050328
  Serious: Yes (Life-Threatening)
  Sender: FDA-Public Use
  Company Number: US-MERCK-0410USA02039

PATIENT
  Age: 77 Year
  Sex: Male

DRUGS (3)
  1. VIOXX [Suspect]
     Indication: BACK PAIN
     Route: 065
     Dates: start: 20000101, end: 20010101
  2. VIOXX [Suspect]
     Route: 065
     Dates: start: 20000101, end: 20010101
  3. ZOCOR [Concomitant]
     Route: 048

REACTIONS (1)
  - CHEST PAIN [None]
